FAERS Safety Report 10223640 (Version 1)
Quarter: 2014Q2

REPORT INFORMATION
  Report Type: Spontaneous
  Country: US (occurrence: None)
  Receive Date: 20140605
  Receipt Date: 20140605
  Transmission Date: 20141212
  Serious: Yes (Hospitalization)
  Sender: FDA-Public Use
  Company Number: 2014AP003177

PATIENT
  Age: 34 Year
  Sex: Female
  Weight: 59.9 kg

DRUGS (6)
  1. FERRIPROX [Suspect]
     Route: 048
     Dates: start: 201403, end: 2014
  2. AMLODIPINE (AMLODIPINE) [Concomitant]
  3. FOLIC ACID (FOLIC ACID) [Concomitant]
  4. HYDROMORPHONE (HYDROMORPHONE) [Concomitant]
  5. NEPHRO VITE RX (ASCORBIC ACID, FOLIC ACID, VITAMIN B COMPLEX) [Concomitant]
  6. TUMS (CALCIUM CARBONATE, MAGNESIUM CARBONATE, MAGNESIUM TRISLICATE) [Concomitant]

REACTIONS (1)
  - Investigation [None]
